FAERS Safety Report 12958280 (Version 2)
Quarter: 2017Q1

REPORT INFORMATION
  Report Type: Report from Study
  Country: None (occurrence: US)
  Receive Date: 20161120
  Receipt Date: 20170116
  Transmission Date: 20170428
  Serious: Yes (Death)
  Sender: FDA-Public Use
  Company Number: US-ABBVIE-16K-163-1784433-00

PATIENT
  Age: 76 Year
  Sex: Male

DRUGS (1)
  1. HUMIRA [Suspect]
     Active Substance: ADALIMUMAB
     Indication: CROHN^S DISEASE
     Route: 058
     Dates: start: 20160216, end: 20160914

REACTIONS (2)
  - Sepsis [Fatal]
  - Atrioventricular block complete [Fatal]

NARRATIVE: CASE EVENT DATE: 20160927
